FAERS Safety Report 10279676 (Version 1)
Quarter: 2014Q3

REPORT INFORMATION
  Report Type: Spontaneous
  Country: US (occurrence: None)
  Receive Date: 20140702
  Receipt Date: 20140702
  Transmission Date: 20150326
  Serious: Yes (Hospitalization)
  Sender: FDA-Public Use
  Company Number: None

PATIENT
  Age: 56 Year
  Sex: Female

DRUGS (3)
  1. PEGASYS [Suspect]
     Active Substance: PEGINTERFERON ALFA-2A
     Dosage: 80MG?SQ?QWK
     Dates: start: 20140506, end: 20140606
  2. RIBAVIRIN. [Suspect]
     Active Substance: RIBAVIRIN
     Indication: HEPATITIS C
     Dosage: 200MG ?3POAN, 2POPM
     Route: 048
     Dates: start: 20140506, end: 20140606
  3. SOVALDI [Suspect]
     Active Substance: SOFOSBUVIR
     Indication: HEPATITIS C
     Route: 048
     Dates: start: 20140516, end: 20140606

REACTIONS (2)
  - Therapy cessation [None]
  - Mental disorder [None]

NARRATIVE: CASE EVENT DATE: 20140606
